FAERS Safety Report 25830384 (Version 1)
Quarter: 2025Q3

REPORT INFORMATION
  Report Type: Spontaneous
  Country: BR (occurrence: BR)
  Receive Date: 20250922
  Receipt Date: 20250922
  Transmission Date: 20251020
  Serious: Yes (Other)
  Sender: CSL BEHRING
  Company Number: BR-BEH-2025218916

PATIENT
  Age: 46 Year
  Sex: Female

DRUGS (1)
  1. HUMAN IMMUNOGLOBULIN G [Suspect]
     Active Substance: HUMAN IMMUNOGLOBULIN G
     Indication: Chronic inflammatory demyelinating polyradiculoneuropathy
     Route: 042
     Dates: start: 20240815, end: 20240819

REACTIONS (7)
  - Autoimmune haemolytic anaemia [Unknown]
  - Skin discolouration [Unknown]
  - Chromaturia [Unknown]
  - Blood lactate dehydrogenase increased [Unknown]
  - Blood bilirubin increased [Unknown]
  - Acquired porphyria [Unknown]
  - Urine porphobilinogen increased [Unknown]
